FAERS Safety Report 23626155 (Version 1)
Quarter: 2024Q1

REPORT INFORMATION
  Report Type: Spontaneous
  Country: FR (occurrence: FR)
  Receive Date: 20240313
  Receipt Date: 20240313
  Transmission Date: 20240410
  Serious: Yes (Other)
  Sender: FDA-Public Use
  Company Number: FR-B.Braun Medical Inc.-2154293

PATIENT
  Age: 37 Year
  Sex: Female
  Weight: 85 kg

DRUGS (3)
  1. ACETAMINOPHEN [Suspect]
     Active Substance: ACETAMINOPHEN
     Dates: start: 20240113, end: 20240118
  2. CODEINE [Suspect]
     Active Substance: CODEINE
  3. KETOPROFEN [Concomitant]
     Active Substance: KETOPROFEN

REACTIONS (3)
  - Hepatic cytolysis [Recovered/Resolved]
  - Incorrect dosage administered [Recovered/Resolved]
  - Sphincter of Oddi dysfunction [Recovered/Resolved]
